FAERS Safety Report 16492675 (Version 2)
Quarter: 2019Q3

REPORT INFORMATION
  Report Type: Report from Study
  Country: JP (occurrence: JP)
  Receive Date: 20190628
  Receipt Date: 20190719
  Transmission Date: 20191004
  Serious: Yes (Other)
  Sender: FDA-Public Use
  Company Number: PHJP2019JP007056

PATIENT
  Age: 77 Year
  Sex: Female

DRUGS (48)
  1. ARZERRA [Suspect]
     Active Substance: OFATUMUMAB
     Dosage: 2000MG, AS PER DOSAGE AND ADMINISTRATION RELATED NOTES
     Route: 041
     Dates: start: 20150508
  2. ARZERRA [Suspect]
     Active Substance: OFATUMUMAB
     Dosage: 2000MG, AS PER DOSAGE AND ADMINISTRATION RELATED NOTES
     Route: 041
     Dates: start: 20150605
  3. PREDNISOLONE. [Concomitant]
     Active Substance: PREDNISOLONE
     Dosage: 100 MG, UNK
     Route: 065
     Dates: start: 20150605
  4. PREDNISOLONE. [Concomitant]
     Active Substance: PREDNISOLONE
     Dosage: 100 MG, UNK
     Route: 065
     Dates: start: 20150731
  5. ACETAMINOPHEN. [Concomitant]
     Active Substance: ACETAMINOPHEN
     Indication: PREMEDICATION
     Dosage: 400 MG, UNK
     Route: 065
     Dates: start: 20150219
  6. BENA [Concomitant]
     Indication: PREMEDICATION
     Dosage: 50 MG, UNK
     Route: 048
     Dates: start: 20150219
  7. BENA [Concomitant]
     Dosage: 50 MG, UNK
     Route: 048
     Dates: start: 20150305
  8. BENA [Concomitant]
     Dosage: 50 MG, UNK
     Route: 048
     Dates: start: 20150409
  9. ARZERRA [Suspect]
     Active Substance: OFATUMUMAB
     Dosage: 2000 MG, UNK
     Route: 041
     Dates: start: 20150226
  10. PREDNISOLONE. [Concomitant]
     Active Substance: PREDNISOLONE
     Dosage: 100 MG, UNK
     Route: 065
     Dates: start: 20150508
  11. ACETAMINOPHEN. [Concomitant]
     Active Substance: ACETAMINOPHEN
     Dosage: 400 MG, UNK
     Route: 065
     Dates: start: 20150605
  12. BENA [Concomitant]
     Dosage: 50 MG, UNK
     Route: 048
     Dates: start: 20150312
  13. BENA [Concomitant]
     Dosage: 50 MG, UNK
     Route: 048
     Dates: start: 20150402
  14. BENA [Concomitant]
     Dosage: 50 MG, UNK
     Route: 048
     Dates: start: 20150605
  15. ARZERRA [Suspect]
     Active Substance: OFATUMUMAB
     Dosage: 2000MG, AS PER DOSAGE AND ADMINISTRATION RELATED NOTES
     Route: 041
     Dates: start: 20150731
  16. PREDNISOLONE. [Concomitant]
     Active Substance: PREDNISOLONE
     Dosage: 100 MG, UNK
     Route: 065
     Dates: start: 20150226
  17. PREDNISOLONE. [Concomitant]
     Active Substance: PREDNISOLONE
     Dosage: 100 MG, UNK
     Route: 065
     Dates: start: 20150312
  18. ACETAMINOPHEN. [Concomitant]
     Active Substance: ACETAMINOPHEN
     Dosage: 400 MG, UNK
     Route: 065
     Dates: start: 20150319
  19. ACETAMINOPHEN. [Concomitant]
     Active Substance: ACETAMINOPHEN
     Dosage: 400 MG, UNK
     Route: 065
     Dates: start: 20150703
  20. ARZERRA [Suspect]
     Active Substance: OFATUMUMAB
     Indication: CHRONIC LYMPHOCYTIC LEUKAEMIA
     Dosage: 300MG, 100 ML/HOUR INCREASED TO 200 ML/HOUR
     Route: 041
     Dates: start: 20150219
  21. PREDNISOLONE. [Concomitant]
     Active Substance: PREDNISOLONE
     Dosage: 100 MG, UNK
     Route: 065
     Dates: start: 20150305
  22. PREDNISOLONE. [Concomitant]
     Active Substance: PREDNISOLONE
     Dosage: 100 MG, UNK
     Route: 065
     Dates: start: 20150409
  23. ACETAMINOPHEN. [Concomitant]
     Active Substance: ACETAMINOPHEN
     Dosage: 400 MG, UNK
     Route: 065
     Dates: start: 20150226
  24. ACETAMINOPHEN. [Concomitant]
     Active Substance: ACETAMINOPHEN
     Dosage: 400 MG, UNK
     Route: 065
     Dates: start: 20150402
  25. ACETAMINOPHEN. [Concomitant]
     Active Substance: ACETAMINOPHEN
     Dosage: 400 MG, UNK
     Route: 065
     Dates: start: 20180731
  26. BENA [Concomitant]
     Dosage: 50 MG, UNK
     Route: 048
     Dates: start: 20150226
  27. BENA [Concomitant]
     Dosage: 50 MG, UNK
     Route: 048
     Dates: start: 20150326
  28. ARZERRA [Suspect]
     Active Substance: OFATUMUMAB
     Dosage: 2000MG, AS PER DOSAGE AND ADMINISTRATION RELATED NOTES
     Route: 041
     Dates: start: 20150326
  29. ARZERRA [Suspect]
     Active Substance: OFATUMUMAB
     Dosage: 2000MG, AS PER DOSAGE AND ADMINISTRATION RELATED NOTES
     Route: 041
     Dates: start: 20150703
  30. ACETAMINOPHEN. [Concomitant]
     Active Substance: ACETAMINOPHEN
     Dosage: 400 MG, UNK
     Route: 065
     Dates: start: 20150409
  31. BENA [Concomitant]
     Dosage: 50 MG, UNK
     Route: 048
     Dates: start: 20150703
  32. BENA [Concomitant]
     Dosage: 50 MG, UNK
     Route: 048
     Dates: start: 20150731
  33. PREDNISOLONE. [Concomitant]
     Active Substance: PREDNISOLONE
     Indication: PREMEDICATION
     Dosage: 100 MG, UNK
     Route: 065
     Dates: start: 20150219
  34. ACETAMINOPHEN. [Concomitant]
     Active Substance: ACETAMINOPHEN
     Dosage: 400 MG, UNK
     Route: 065
     Dates: start: 20150326
  35. ACETAMINOPHEN. [Concomitant]
     Active Substance: ACETAMINOPHEN
     Dosage: 400 MG, UNK
     Route: 065
     Dates: start: 20150508
  36. ARZERRA [Suspect]
     Active Substance: OFATUMUMAB
     Dosage: 2000MG, AS PER DOSAGE AND ADMINISTRATION RELATED NOTES
     Route: 041
     Dates: start: 20150312
  37. ARZERRA [Suspect]
     Active Substance: OFATUMUMAB
     Dosage: 2000MG, AS PER DOSAGE AND ADMINISTRATION RELATED NOTES
     Route: 041
     Dates: start: 20150402
  38. PREDNISOLONE. [Concomitant]
     Active Substance: PREDNISOLONE
     Dosage: 100 MG, UNK
     Route: 065
     Dates: start: 20150703
  39. ACETAMINOPHEN. [Concomitant]
     Active Substance: ACETAMINOPHEN
     Dosage: 400 MG, UNK
     Route: 065
     Dates: start: 20150312
  40. BENA [Concomitant]
     Dosage: 50 MG, UNK
     Route: 048
     Dates: start: 20150508
  41. ARZERRA [Suspect]
     Active Substance: OFATUMUMAB
     Dosage: 2000MG, AS PER DOSAGE AND ADMINISTRATION RELATED NOTES
     Route: 041
     Dates: start: 20150305
  42. ARZERRA [Suspect]
     Active Substance: OFATUMUMAB
     Dosage: 2000MG, AS PER DOSAGE AND ADMINISTRATION RELATED NOTES
     Route: 041
     Dates: start: 20150319
  43. ARZERRA [Suspect]
     Active Substance: OFATUMUMAB
     Dosage: 2000MG, AS PER DOSAGE AND ADMINISTRATION RELATED NOTES
     Route: 041
     Dates: start: 20150409
  44. PREDNISOLONE. [Concomitant]
     Active Substance: PREDNISOLONE
     Dosage: 100 MG, UNK
     Route: 065
     Dates: start: 20150319
  45. PREDNISOLONE. [Concomitant]
     Active Substance: PREDNISOLONE
     Dosage: 100 MG, UNK
     Route: 065
     Dates: start: 20150326
  46. PREDNISOLONE. [Concomitant]
     Active Substance: PREDNISOLONE
     Dosage: 100 MG, UNK
     Route: 065
     Dates: start: 20150402
  47. ACETAMINOPHEN. [Concomitant]
     Active Substance: ACETAMINOPHEN
     Dosage: 400 MG, UNK
     Route: 065
     Dates: start: 20150305
  48. BENA [Concomitant]
     Dosage: 50 MG, UNK
     Route: 048
     Dates: start: 20150319

REACTIONS (1)
  - Eczema [Recovered/Resolved]

NARRATIVE: CASE EVENT DATE: 20150219
